FAERS Safety Report 6149178-2 (Version None)
Quarter: 2009Q2

REPORT INFORMATION
  Report Type: 
  Country: None (occurrence: None)
  Receive Date: 20090407
  Receipt Date: 20090402
  Transmission Date: 20091009
  Serious: Yes (Death, Hospitalization, Other)
  Sender: FDA-Public Use
  Company Number: OMPQ-NO-0902S-0090

PATIENT
  Age: 32 Year
  Sex: Female
  Weight: 50 kg

DRUGS (1)
  1. OMNIPAQUE 300 [Suspect]
     Indication: BACK PAIN
     Dosage: 10 ML, SINGLE DOSE, I.T.
     Dates: start: 20090128, end: 20090128

REACTIONS (4)
  - CONTRAST MEDIA REACTION [None]
  - DISSEMINATED INTRAVASCULAR COAGULATION [None]
  - MENINGITIS [None]
  - STATUS EPILEPTICUS [None]
